FAERS Safety Report 9729127 (Version 1)
Quarter: 2013Q4

REPORT INFORMATION
  Report Type: Spontaneous
  Country: US (occurrence: None)
  Receive Date: 20131204
  Receipt Date: 20131204
  Transmission Date: 20140711
  Serious: Yes (Hospitalization, Other)
  Sender: FDA-Public Use
  Company Number: None

PATIENT
  Age: 5 Month
  Sex: Female
  Weight: 7.62 kg

DRUGS (2)
  1. LANSOPRAZOLE 3 MG/ML SUSP - NAHCO3 POW [Suspect]
     Indication: GASTROOESOPHAGEAL REFLUX DISEASE
     Dosage: 2 ML  1X/DAY  BY MOUTH
     Route: 048
     Dates: start: 20131001, end: 20131018
  2. POLY-VI-SOL WITH IRON [Concomitant]

REACTIONS (2)
  - Product compounding quality issue [None]
  - Convulsion [None]
